FAERS Safety Report 6966201-3 (Version None)
Quarter: 2010Q3

REPORT INFORMATION
  Report Type: 
  Country: None (occurrence: None)
  Receive Date: 20100901
  Receipt Date: 20100826
  Transmission Date: 20110219
  Serious: Yes (Hospitalization)
  Sender: FDA-Public Use
  Company Number: 2010SP025569

PATIENT
  Age: 45 Year
  Sex: Male
  Weight: 93.3049 kg

DRUGS (17)
  1. TEMODAR [Suspect]
     Indication: GLIOBLASTOMA MULTIFORME
     Dosage: 100 MG QD PO; 100 MG QD PO; 100 MG/M2 QD PO; 75 MG/M2 QD PO; 75 MG/M2 QD PO
     Route: 048
     Dates: start: 20100309, end: 20100329
  2. TEMODAR [Suspect]
     Indication: GLIOBLASTOMA MULTIFORME
     Dosage: 100 MG QD PO; 100 MG QD PO; 100 MG/M2 QD PO; 75 MG/M2 QD PO; 75 MG/M2 QD PO
     Route: 048
     Dates: start: 20100406, end: 20100426
  3. TEMODAR [Suspect]
     Indication: GLIOBLASTOMA MULTIFORME
     Dosage: 100 MG QD PO; 100 MG QD PO; 100 MG/M2 QD PO; 75 MG/M2 QD PO; 75 MG/M2 QD PO
     Route: 048
     Dates: start: 20100512, end: 20100601
  4. TEMODAR [Suspect]
     Indication: GLIOBLASTOMA MULTIFORME
     Dosage: 100 MG QD PO; 100 MG QD PO; 100 MG/M2 QD PO; 75 MG/M2 QD PO; 75 MG/M2 QD PO
     Route: 048
     Dates: start: 20100629, end: 20100719
  5. TEMODAR [Suspect]
     Indication: GLIOBLASTOMA MULTIFORME
     Dosage: 100 MG QD PO; 100 MG QD PO; 100 MG/M2 QD PO; 75 MG/M2 QD PO; 75 MG/M2 QD PO
     Route: 048
     Dates: start: 20100728, end: 20100817
  6. BACTRIM [Concomitant]
  7. DEXAMETHASONE [Concomitant]
  8. ZOFRAN [Concomitant]
  9. TYLENOL [Concomitant]
  10. PROPRANOLOL [Concomitant]
  11. OMEPRAZOLE [Concomitant]
  12. NYSTATIN [Concomitant]
  13. NORTRIPTYLINE HCL [Concomitant]
  14. KEPPRA [Concomitant]
  15. COLACE [Concomitant]
  16. ATIVAN [Concomitant]
  17. RITALIN [Concomitant]

REACTIONS (26)
  - ABDOMINAL DISCOMFORT [None]
  - ABDOMINAL DISTENSION [None]
  - ALANINE AMINOTRANSFERASE INCREASED [None]
  - BACK PAIN [None]
  - BLOOD PRESSURE INCREASED [None]
  - BRAIN MASS [None]
  - CEREBRAL HAEMORRHAGE [None]
  - CHEST PAIN [None]
  - CHOLELITHIASIS [None]
  - DECREASED APPETITE [None]
  - DIARRHOEA [None]
  - HEADACHE [None]
  - HEPATIC STEATOSIS [None]
  - HYPERGLYCAEMIA [None]
  - HYPOKALAEMIA [None]
  - INGUINAL HERNIA [None]
  - LUNG CONSOLIDATION [None]
  - MICROCYTIC ANAEMIA [None]
  - NAUSEA [None]
  - PLEURAL EFFUSION [None]
  - PNEUMOTHORAX [None]
  - PULMONARY EMBOLISM [None]
  - PYREXIA [None]
  - SINUS TACHYCARDIA [None]
  - TRANSAMINASES INCREASED [None]
  - VOMITING [None]
